FAERS Safety Report 4288697-0 (Version None)
Quarter: 2004Q1

REPORT INFORMATION
  Report Type: 
  Country: None (occurrence: None)
  Receive Date: 20040205
  Receipt Date: 20040123
  Transmission Date: 20041129
  Serious: Yes (Hospitalization)
  Sender: FDA-Public Use
  Company Number: CA-SHR-04-019359

PATIENT
  Age: 75 Year
  Sex: Female

DRUGS (9)
  1. FLUDARA [Suspect]
     Indication: CHRONIC LYMPHOCYTIC LEUKAEMIA
     Dosage: 60  MG, CYCLE X 5D, ORAL
     Route: 048
     Dates: start: 20031128, end: 20031130
  2. EMPRACET [Concomitant]
  3. SENOKOT [Concomitant]
  4. COUMADIN [Concomitant]
  5. SOTACOR [Concomitant]
  6. NORVASC    /DEN/ (AMLODIPINE BESILATE) [Concomitant]
  7. PRINIVIL [Concomitant]
  8. LIPITOR [Concomitant]
  9. RESTORIL [Concomitant]

REACTIONS (9)
  - ACUTE PULMONARY OEDEMA [None]
  - ANAEMIA [None]
  - ANAEMIA HAEMOLYTIC AUTOIMMUNE [None]
  - BLOOD BILIRUBIN INCREASED [None]
  - BLOOD LACTATE DEHYDROGENASE INCREASED [None]
  - BODY TEMPERATURE INCREASED [None]
  - DIALYSIS [None]
  - LEFT VENTRICULAR FAILURE [None]
  - RENAL FAILURE [None]
